FAERS Safety Report 25822622 (Version 1)
Quarter: 2025Q3

REPORT INFORMATION
  Report Type: Spontaneous
  Country: RU (occurrence: RU)
  Receive Date: 20250919
  Receipt Date: 20250919
  Transmission Date: 20251020
  Serious: Yes (Other)
  Sender: BAYER HEALTHCARE PHARMACEUTICALS INC.
  Company Number: RU-BAYER-2025A119116

PATIENT

DRUGS (2)
  1. FINERENONE [Suspect]
     Active Substance: FINERENONE
  2. SULODEXIDE [Suspect]
     Active Substance: SULODEXIDE

REACTIONS (3)
  - Blood pressure decreased [None]
  - Loss of consciousness [None]
  - Epistaxis [None]
